FAERS Safety Report 24425873 (Version 2)
Quarter: 2024Q4

REPORT INFORMATION
  Report Type: Report from Study
  Country: IL (occurrence: IL)
  Receive Date: 20241011
  Receipt Date: 20241201
  Transmission Date: 20250115
  Serious: Yes (Hospitalization, Other)
  Sender: ABBVIE
  Company Number: IL-ABBVIE-5956701

PATIENT
  Age: 31 Year
  Sex: Female

DRUGS (1)
  1. SKYRIZI [Suspect]
     Active Substance: RISANKIZUMAB-RZAA
     Indication: Crohn^s disease
     Dosage: FORM STRENGTH: 360 MILLIGRAM
     Route: 058
     Dates: start: 20240301, end: 20241008

REACTIONS (3)
  - Gastrointestinal inflammation [Not Recovered/Not Resolved]
  - Drug ineffective [Unknown]
  - Stoma creation [Unknown]

NARRATIVE: CASE EVENT DATE: 20240101
